FAERS Safety Report 18725338 (Version 1)
Quarter: 2021Q1

REPORT INFORMATION
  Report Type: Spontaneous
  Country: ES (occurrence: ES)
  Receive Date: 20210111
  Receipt Date: 20210111
  Transmission Date: 20210419
  Serious: Yes (Other)
  Sender: FDA-Public Use
  Company Number: ES-TEVA-2021-ES-1866590

PATIENT
  Age: 76 Year
  Sex: Male
  Weight: 81 kg

DRUGS (3)
  1. LOPINAVIR + RITONAVIR [Interacting]
     Active Substance: LOPINAVIR\RITONAVIR
     Indication: COVID-19
     Dosage: FIRST DAY, THEN 200MG EVERY 12 HOURS,400MG
     Route: 048
     Dates: start: 20200421
  2. AZITROMICINA (7019A) [Suspect]
     Active Substance: AZITHROMYCIN
     Indication: COVID-19
     Dosage: THE FIRST DAY, THEN 250MG / DAY,500MG
     Route: 048
     Dates: start: 20200421
  3. HIDROXICLOROQUINA (2143A) [Interacting]
     Active Substance: HYDROXYCHLOROQUINE
     Indication: COVID-19
     Route: 048
     Dates: start: 20200421

REACTIONS (2)
  - Long QT syndrome [Recovered/Resolved]
  - Drug interaction [Unknown]

NARRATIVE: CASE EVENT DATE: 20200423
